FAERS Safety Report 5252586-5 (Version None)
Quarter: 2007Q1

REPORT INFORMATION
  Report Type: 
  Country: None (occurrence: None)
  Receive Date: 20070227
  Receipt Date: 20070227
  Transmission Date: 20070707
  Serious: Yes (Other)
  Sender: FDA-Public Use
  Company Number: None

PATIENT
  Age: 40 Year
  Sex: Male
  Weight: 102.0593 kg

DRUGS (2)
  1. ZYPREXA [Suspect]
     Indication: ANXIETY
     Dosage: 2.5MG  AT NIGHT  PO
     Route: 048
     Dates: start: 20050601, end: 20070110
  2. ZYPREXA [Suspect]
     Indication: INSOMNIA
     Dosage: 2.5MG  AT NIGHT  PO
     Route: 048
     Dates: start: 20050601, end: 20070110

REACTIONS (10)
  - ANXIETY [None]
  - CHILLS [None]
  - CONDITION AGGRAVATED [None]
  - DRUG DEPENDENCE [None]
  - DRUG EFFECT DECREASED [None]
  - DRUG WITHDRAWAL SYNDROME [None]
  - FEELING HOT AND COLD [None]
  - HYPERHIDROSIS [None]
  - INSOMNIA [None]
  - TREATMENT NONCOMPLIANCE [None]
